FAERS Safety Report 11229191 (Version 2)
Quarter: 2015Q4

REPORT INFORMATION
  Report Type: Spontaneous
  Country: US (occurrence: US)
  Receive Date: 20150630
  Receipt Date: 20151001
  Transmission Date: 20160304
  Serious: No
  Sender: FDA-Public Use
  Company Number: US-BAUSCH-BL-2015-014649

PATIENT
  Sex: Female

DRUGS (2)
  1. JUBLIA [Suspect]
     Active Substance: EFINACONAZOLE
     Indication: ONYCHOMYCOSIS
     Route: 061
     Dates: start: 201410
  2. JUBLIA [Suspect]
     Active Substance: EFINACONAZOLE
     Dosage: DAILY
     Route: 061
     Dates: start: 201507

REACTIONS (1)
  - Application site rash [Not Recovered/Not Resolved]

NARRATIVE: CASE EVENT DATE: 201505
